FAERS Safety Report 20443787 (Version 3)
Quarter: 2022Q1

REPORT INFORMATION
  Report Type: Spontaneous
  Country: US (occurrence: US)
  Receive Date: 20220208
  Receipt Date: 20220315
  Transmission Date: 20220424
  Serious: Yes (Life-Threatening, Hospitalization, Other)
  Sender: FDA-Public Use
  Company Number: US-drreddys-SPO/USA/22/0146695

PATIENT
  Age: 69 Year
  Sex: Male

DRUGS (3)
  1. HEPARIN SODIUM [Suspect]
     Active Substance: HEPARIN SODIUM
     Indication: Cardiovascular event prophylaxis
     Route: 058
  2. MILRINONE [Concomitant]
     Active Substance: MILRINONE
     Indication: Coronary artery disease
     Route: 042
  3. MILRINONE [Concomitant]
     Active Substance: MILRINONE
     Indication: Arteriosclerosis coronary artery

REACTIONS (1)
  - Heparin-induced thrombocytopenia [Recovered/Resolved]
